FAERS Safety Report 5288760-1 (Version None)
Quarter: 2007Q2

REPORT INFORMATION
  Report Type: 
  Country: None (occurrence: None)
  Receive Date: 20070405
  Receipt Date: 20070403
  Transmission Date: 20071010
  Serious: Yes (Death)
  Sender: FDA-Public Use
  Company Number: US-SANOFI-SYNTHELABO-F01200700295

PATIENT
  Sex: Male

DRUGS (11)
  1. METOPROLOL SUCCINATE [Concomitant]
     Dosage: UNK
     Route: 065
     Dates: start: 20061127
  2. TRIAMTERENE [Concomitant]
  3. CELEBREX [Concomitant]
     Dosage: UNK
     Route: 065
     Dates: start: 20070219
  4. LOMOTIL [Concomitant]
     Dosage: UNK
     Route: 065
     Dates: start: 20070219
  5. BENADRYL [Concomitant]
     Dosage: UNK
     Route: 065
     Dates: start: 20070205
  6. ASPIRIN [Concomitant]
     Dosage: UNK
     Route: 065
     Dates: start: 20061127
  7. METFORMIN HCL [Concomitant]
     Dosage: UNK
     Route: 065
     Dates: start: 20061108
  8. VYTORIN [Concomitant]
     Dosage: UNK
     Route: 065
     Dates: start: 20061003
  9. CAPECITABINE [Suspect]
     Dosage: D1-8
     Route: 048
  10. BEVACIZUMAB [Suspect]
     Route: 042
  11. OXALIPLATIN [Suspect]
     Indication: COLORECTAL CANCER METASTATIC
     Route: 042

REACTIONS (3)
  - ATRIAL FIBRILLATION [None]
  - METABOLIC ACIDOSIS [None]
  - SEPTIC SHOCK [None]
